FAERS Safety Report 25089348 (Version 2)
Quarter: 2025Q1

REPORT INFORMATION
  Report Type: Spontaneous
  Country: US (occurrence: US)
  Receive Date: 20250318
  Receipt Date: 20250325
  Transmission Date: 20250408
  Serious: Yes (Other)
  Sender: REGENERON
  Company Number: US-REGENERON PHARMACEUTICALS, INC.-2025-048454

PATIENT
  Sex: Male

DRUGS (5)
  1. EYLEA [Suspect]
     Active Substance: AFLIBERCEPT
     Indication: Neovascular age-related macular degeneration
  2. EYLEA [Suspect]
     Active Substance: AFLIBERCEPT
     Dates: start: 2015
  3. EYLEA [Suspect]
     Active Substance: AFLIBERCEPT
     Dates: end: 202407
  4. EYLEA [Suspect]
     Active Substance: AFLIBERCEPT
     Dates: start: 202405, end: 202405
  5. EYLEA [Suspect]
     Active Substance: AFLIBERCEPT
     Dates: start: 2024

REACTIONS (4)
  - Retinal oedema [Recovered/Resolved]
  - Retinal pigment epithelial tear [Recovering/Resolving]
  - Visual impairment [Unknown]
  - Vision blurred [Unknown]

NARRATIVE: CASE EVENT DATE: 20240101
